FAERS Safety Report 13983298 (Version 1)
Quarter: 2017Q3

REPORT INFORMATION
  Report Type: Spontaneous
  Country: GB (occurrence: GB)
  Receive Date: 20170918
  Receipt Date: 20170918
  Transmission Date: 20171128
  Serious: Yes (Hospitalization, Other)
  Sender: FDA-Public Use
  Company Number: GB-AMGEN-GBRSP2017138075

PATIENT
  Age: 46 Year
  Sex: Female
  Weight: 60 kg

DRUGS (3)
  1. TRIPTORELIN ACETATE [Concomitant]
     Active Substance: TRIPTORELIN ACETATE
     Dosage: UNK
  2. LETROZOLE. [Concomitant]
     Active Substance: LETROZOLE
     Dosage: UNK
  3. XGEVA [Suspect]
     Active Substance: DENOSUMAB
     Indication: BREAST CANCER METASTATIC
     Dosage: 120 MG, QMO
     Route: 058
     Dates: start: 20150525

REACTIONS (3)
  - Cellulitis [Recovered/Resolved]
  - Pyrexia [Unknown]
  - Beta haemolytic streptococcal infection [Unknown]

NARRATIVE: CASE EVENT DATE: 20160212
